FAERS Safety Report 16811429 (Version 2)
Quarter: 2019Q3

REPORT INFORMATION
  Report Type: Spontaneous
  Country: US (occurrence: US)
  Receive Date: 20190916
  Receipt Date: 20190920
  Transmission Date: 20191005
  Serious: Yes (Death, Hospitalization, Other)
  Sender: FDA-Public Use
  Company Number: US-ALLERGAN-1936229US

PATIENT
  Sex: Male
  Weight: 57.14 kg

DRUGS (2)
  1. UNSPECIFIED MEDICATIONS [Concomitant]
     Active Substance: UNSPECIFIED INGREDIENT
     Dosage: UNK
  2. BOTOX [Suspect]
     Active Substance: ONABOTULINUMTOXINA
     Indication: NEUROGENIC BLADDER
     Dosage: 200 UNITS, SINGLE
     Dates: start: 201904, end: 201904

REACTIONS (9)
  - Pneumonia [Unknown]
  - Osteomyelitis [Fatal]
  - Pneumothorax [Unknown]
  - Urinary tract infection [Not Recovered/Not Resolved]
  - Aspiration [Unknown]
  - Weight decreased [Unknown]
  - Decubitus ulcer [Unknown]
  - Sepsis [Unknown]
  - Urinary retention [Unknown]

NARRATIVE: CASE EVENT DATE: 201906
